FAERS Safety Report 7794129-8 (Version None)
Quarter: 2011Q4

REPORT INFORMATION
  Report Type: 
  Country: None (occurrence: None)
  Receive Date: 20111004
  Receipt Date: 20110927
  Transmission Date: 20120403
  Serious: Yes (Disabling)
  Sender: FDA-Public Use
  Company Number: AU-AMGEN-AUSSP2011050245

PATIENT
  Age: 58 Year
  Sex: Male
  Weight: 85 kg

DRUGS (7)
  1. NEULASTA [Suspect]
     Indication: CHEMOTHERAPY
     Dosage: 6 MG, Q2WK
     Route: 058
     Dates: start: 20110518
  2. CYCLOPHOSPHAMIDE [Suspect]
     Dosage: 1500 MG, Q2WK
  3. GRANISETRON [Suspect]
     Dosage: 3 MG, Q2WK
     Route: 042
     Dates: start: 20110517
  4. DOXORUBICIN HCL [Suspect]
     Dosage: 100 MG, Q2WK
     Route: 042
     Dates: start: 20110517
  5. METHOTREXATE [Suspect]
     Dosage: 12 MG, UNK
     Dates: start: 20110517
  6. RITUXIMAB [Suspect]
     Dosage: 800 MG, Q2WK
     Route: 042
     Dates: start: 20110517
  7. VINCRISTINE [Suspect]
     Dosage: 2 MG, Q2WK
     Route: 042
     Dates: start: 20110517

REACTIONS (3)
  - HEADACHE [None]
  - MUSCULOSKELETAL STIFFNESS [None]
  - PHOTOSENSITIVITY REACTION [None]
